FAERS Safety Report 6890104-6 (Version None)
Quarter: 2010Q3

REPORT INFORMATION
  Report Type: 
  Country: None (occurrence: None)
  Receive Date: 20100730
  Receipt Date: 20080811
  Transmission Date: 20110219
  Serious: No
  Sender: FDA-Public Use
  Company Number: US-PFIZER INC-2008058017

PATIENT
  Sex: Male
  Weight: 113.4 kg

DRUGS (2)
  1. LIPITOR [Suspect]
     Indication: HYPERLIPIDAEMIA
  2. LIPITOR [Suspect]
     Indication: TYPE 2 DIABETES MELLITUS

REACTIONS (1)
  - NEURALGIA [None]
